FAERS Safety Report 8893498 (Version 1)
Quarter: 2012Q4

REPORT INFORMATION
  Report Type: 
  Country: US (occurrence: US)
  Receive Date: 20121107
  Receipt Date: 20121107
  Transmission Date: 20130627
  Serious: No
  Sender: FDA-Public Use
  Company Number: US-AMGEN-USASP2011052463

PATIENT
  Age: 80 Year
  Sex: Female
  Weight: 69.84 kg

DRUGS (8)
  1. ENBREL [Suspect]
     Indication: PRODUCT USED FOR UNKNOWN INDICATION
     Dosage: 50 mg, qwk
  2. PREDNISONE [Concomitant]
  3. SYNTHROID [Concomitant]
  4. GEMFIBROZIL [Concomitant]
  5. ATENOLOL [Concomitant]
  6. OMEPRAZOLE [Concomitant]
  7. DICYCLOMINE                        /00068601/ [Concomitant]
  8. MULTIVITAMIN                       /00097801/ [Concomitant]

REACTIONS (1)
  - Sinusitis [Recovered/Resolved]
